APPROVED DRUG PRODUCT: RELISTOR
Active Ingredient: METHYLNALTREXONE BROMIDE
Strength: 150MG
Dosage Form/Route: TABLET;ORAL
Application: N208271 | Product #001
Applicant: SALIX PHARMACEUTICALS INC
Approved: Jul 19, 2016 | RLD: Yes | RS: Yes | Type: RX

PATENTS:
Patent 9180125 | Expires: Sep 30, 2029
Patent 9492445 | Expires: Sep 30, 2029
Patent 9724343 | Expires: Sep 30, 2029
Patent 8420663 | Expires: Sep 30, 2029
Patent 8956651 | Expires: Mar 10, 2031
Patent 9314461 | Expires: Mar 10, 2031
Patent 10376505 | Expires: Mar 10, 2031
Patent 8524276 | Expires: Mar 10, 2031
Patent 10307417 | Expires: Mar 10, 2031